FAERS Safety Report 7859833-1 (Version None)
Quarter: 2011Q4

REPORT INFORMATION
  Report Type: 
  Country: None (occurrence: None)
  Receive Date: 20111027
  Receipt Date: 20111021
  Transmission Date: 20120403
  Serious: Yes (Other)
  Sender: FDA-Public Use
  Company Number: US-PFIZER INC-2011256054

PATIENT
  Age: 92 Year
  Sex: Female

DRUGS (1)
  1. XALATAN [Suspect]
     Indication: PROPHYLAXIS
     Dosage: 1 GTT, 1X/DAY IN EACH EYE
     Route: 047

REACTIONS (2)
  - VISUAL ACUITY REDUCED [None]
  - MALAISE [None]
